FAERS Safety Report 10682771 (Version 2)
Quarter: 2015Q1

REPORT INFORMATION
  Report Type: Spontaneous
  Country: US (occurrence: None)
  Receive Date: 20141217
  Receipt Date: 20150202
  Transmission Date: 20150720
  Serious: Yes (Life-Threatening, Hospitalization)
  Sender: FDA-Public Use
  Company Number: TPA2011A00329

PATIENT
  Age: 48 Year
  Sex: Female
  Weight: 45.36 kg

DRUGS (5)
  1. XOPENEX [Concomitant]
     Active Substance: LEVALBUTEROL HYDROCHLORIDE
  2. IMITREXA (SUMATRIPTAN SUCCINATE) [Concomitant]
  3. DEXILANT [Suspect]
     Active Substance: DEXLANSOPRAZOLE
     Indication: PEPTIC ULCER
     Route: 048
     Dates: start: 20100912, end: 20100912
  4. TOPAMAX [Concomitant]
     Active Substance: TOPIRAMATE
  5. HUMIRA [Concomitant]
     Active Substance: ADALIMUMAB

REACTIONS (6)
  - Asthenia [None]
  - Hypotension [None]
  - Vomiting [None]
  - Anaphylactic reaction [None]
  - Rash pruritic [None]
  - Chills [None]

NARRATIVE: CASE EVENT DATE: 20100912
